FAERS Safety Report 20998181 (Version 1)
Quarter: 2022Q2

REPORT INFORMATION
  Report Type: Report from Study
  Country: US (occurrence: US)
  Receive Date: 20220623
  Receipt Date: 20220623
  Transmission Date: 20220721
  Serious: Yes (Life-Threatening, Hospitalization, Other)
  Sender: FDA-Public Use
  Company Number: US-BRISTOL-MYERS SQUIBB COMPANY-2022-055780

PATIENT
  Age: 61 Year
  Sex: Male
  Weight: 100.2 kg

DRUGS (2)
  1. NIVOLUMAB [Suspect]
     Active Substance: NIVOLUMAB
     Indication: Glioblastoma
     Route: 065
     Dates: start: 20220404, end: 20220502
  2. IPILIMUMAB [Suspect]
     Active Substance: IPILIMUMAB
     Indication: Glioblastoma
     Route: 065
     Dates: start: 20220404, end: 20220516

REACTIONS (2)
  - Fall [Recovered/Resolved]
  - Brain oedema [Recovered/Resolved]

NARRATIVE: CASE EVENT DATE: 20220517
